FAERS Safety Report 23244898 (Version 1)
Quarter: 2023Q4

REPORT INFORMATION
  Report Type: Spontaneous
  Country: US (occurrence: US)
  Receive Date: 20231130
  Receipt Date: 20231130
  Transmission Date: 20240110
  Serious: No
  Sender: FDA-Public Use
  Company Number: US-AMGEN-USASP2023209947

PATIENT

DRUGS (1)
  1. PROLIA [Suspect]
     Active Substance: DENOSUMAB
     Indication: Anorexia nervosa
     Dosage: 60 MILLIGRAM, Q6MO
     Route: 058

REACTIONS (5)
  - Rebound effect [Unknown]
  - Drug ineffective for unapproved indication [Unknown]
  - Bone density decreased [Unknown]
  - Off label use [Unknown]
  - Bone metabolism biochemical marker increased [Unknown]
